FAERS Safety Report 8405084 (Version 3)
Quarter: 2013Q4

REPORT INFORMATION
  Report Type: Spontaneous
  Country: US (occurrence: US)
  Receive Date: 20120214
  Receipt Date: 20131107
  Transmission Date: 20140711
  Serious: Yes (Hospitalization)
  Sender: FDA-Public Use
  Company Number: US-GLAXOSMITHKLINE-A0769319A

PATIENT
  Age: 55 Year
  Sex: Male

DRUGS (3)
  1. AVANDIA [Suspect]
     Indication: TYPE 2 DIABETES MELLITUS
     Dosage: 8MG PER DAY
     Route: 048
     Dates: start: 200710, end: 200911
  2. PLAVIX [Concomitant]
  3. MULTIPLE MEDICATIONS [Concomitant]

REACTIONS (9)
  - Cerebrovascular accident [Unknown]
  - Joint swelling [Unknown]
  - Insomnia [Unknown]
  - Dyspnoea [Unknown]
  - Chest discomfort [Unknown]
  - Musculoskeletal pain [Unknown]
  - Weight increased [Unknown]
  - Cardiac disorder [Unknown]
  - Cardiovascular disorder [Unknown]
